FAERS Safety Report 10584746 (Version 2)
Quarter: 2014Q4

REPORT INFORMATION
  Report Type: Spontaneous
  Country: CA (occurrence: CA)
  Receive Date: 20141114
  Receipt Date: 20141125
  Transmission Date: 20150529
  Serious: Yes (Hospitalization, Other)
  Sender: FDA-Public Use
  Company Number: CA-009507513-1411CAN003771

PATIENT
  Age: 62 Year
  Sex: Female

DRUGS (1)
  1. ZENHALE [Suspect]
     Active Substance: FORMOTEROL FUMARATE\MOMETASONE FUROATE
     Indication: CHRONIC OBSTRUCTIVE PULMONARY DISEASE
     Dosage: 2 PUFFS AM + PM
     Route: 055

REACTIONS (4)
  - Syncope [Recovering/Resolving]
  - Viral infection [Recovering/Resolving]
  - Meningitis [Recovering/Resolving]
  - Aortic valve disease [Recovering/Resolving]

NARRATIVE: CASE EVENT DATE: 20141009
